FAERS Safety Report 5006307-1 (Version None)
Quarter: 2006Q2

REPORT INFORMATION
  Report Type: 
  Country: None (occurrence: None)
  Receive Date: 20060519
  Receipt Date: 20060512
  Transmission Date: 20061013
  Serious: Yes (Other)
  Sender: FDA-Public Use
  Company Number: 2006UW09433

PATIENT
  Age: 8663 Day
  Sex: Male

DRUGS (7)
  1. SEROQUEL [Suspect]
     Indication: SCHIZOPHRENIA
     Route: 048
  2. SEROQUEL [Suspect]
     Indication: ANXIETY
     Route: 048
  3. ZYPREXA [Suspect]
     Indication: SCHIZOPHRENIA
  4. ZYPREXA [Suspect]
     Indication: ANXIETY
  5. AVANDIA [Concomitant]
  6. TOPROL-XL [Concomitant]
     Route: 048
  7. LOTREL [Concomitant]

REACTIONS (7)
  - ABDOMINAL PAIN [None]
  - CARDIAC VALVE DISEASE [None]
  - DIABETES MELLITUS [None]
  - HEPATOCELLULAR DAMAGE [None]
  - HYPERTENSION [None]
  - NAUSEA [None]
  - WEIGHT INCREASED [None]
